FAERS Safety Report 14757208 (Version 1)
Quarter: 2018Q2

REPORT INFORMATION
  Report Type: Spontaneous
  Country: US (occurrence: US)
  Receive Date: 20180413
  Receipt Date: 20180413
  Transmission Date: 20180711
  Serious: No
  Sender: FDA-Public Use
  Company Number: US-BION-006658

PATIENT
  Age: 84 Year
  Sex: Female
  Weight: 53 kg

DRUGS (3)
  1. GABAPENTIN. [Concomitant]
     Active Substance: GABAPENTIN
  2. ALEVE CAPLETS UNKNOWN [Concomitant]
     Indication: PAIN
     Dosage: DOSAGE TEXT: 1-2
     Route: 048
     Dates: start: 2016, end: 20170920
  3. ALEVE [Suspect]
     Active Substance: NAPROXEN SODIUM
     Indication: PAIN
     Route: 048

REACTIONS (4)
  - Product size issue [Unknown]
  - Cough [Recovered/Resolved]
  - Dyspnoea [Recovered/Resolved]
  - Foreign body in respiratory tract [Recovered/Resolved]
